FAERS Safety Report 6171668-7 (Version None)
Quarter: 2009Q2

REPORT INFORMATION
  Report Type: 
  Country: None (occurrence: None)
  Receive Date: 20090427
  Receipt Date: 20090427
  Transmission Date: 20091009
  Serious: No
  Sender: FDA-Public Use
  Company Number: None

PATIENT
  Age: 27 Year
  Sex: Female
  Weight: 56.246 kg

DRUGS (2)
  1. OCELLA 0.03 MG BARR [Suspect]
     Indication: CONTRACEPTION
     Dosage: 0.03 MG 1 PER DAY PO
     Route: 048
     Dates: start: 20081201, end: 20090410
  2. OCELLA 0.03 MG BARR [Suspect]
     Indication: PREMENSTRUAL SYNDROME
     Dosage: 0.03 MG 1 PER DAY PO
     Route: 048
     Dates: start: 20081201, end: 20090410

REACTIONS (8)
  - ALCOHOL USE [None]
  - DEPRESSION [None]
  - FATIGUE [None]
  - FEELING DRUNK [None]
  - HUNGER [None]
  - MOOD ALTERED [None]
  - PRODUCT SUBSTITUTION ISSUE [None]
  - WEIGHT INCREASED [None]
